FAERS Safety Report 15565665 (Version 1)
Quarter: 2018Q4

REPORT INFORMATION
  Report Type: Spontaneous
  Country: US (occurrence: US)
  Receive Date: 20181025
  Receipt Date: 20181025
  Transmission Date: 20190205
  Serious: No
  Sender: FDA-Public Use
  Company Number: None

PATIENT
  Sex: Female

DRUGS (1)
  1. TRAZODONE [Suspect]
     Active Substance: TRAZODONE HYDROCHLORIDE

REACTIONS (4)
  - Feeling abnormal [None]
  - Loss of consciousness [None]
  - Post-traumatic stress disorder [None]
  - Poor quality sleep [None]

NARRATIVE: CASE EVENT DATE: 20180306
